FAERS Safety Report 4543015-5 (Version None)
Quarter: 2005Q1

REPORT INFORMATION
  Report Type: 
  Country: None (occurrence: None)
  Receive Date: 20050103
  Receipt Date: 20041222
  Transmission Date: 20050727
  Serious: Yes (Death, Hospitalization)
  Sender: FDA-Public Use
  Company Number: US-JNJFOC-20041007897

PATIENT
  Sex: Male
  Weight: 67.59 kg

DRUGS (23)
  1. REMICADE [Suspect]
     Route: 042
  2. REMICADE [Suspect]
     Route: 042
  3. REMICADE [Suspect]
     Route: 042
  4. REMICADE [Suspect]
     Indication: CROHN'S DISEASE
     Route: 042
  5. PREDNISONE [Concomitant]
  6. 6MP [Concomitant]
  7. PENTASA [Concomitant]
  8. PROTONIX [Concomitant]
  9. VITAMIN B-12 [Concomitant]
  10. FOLIC ACID [Concomitant]
     Dosage: 1200 MCG DAILY
  11. CALTRATE D [Concomitant]
  12. CALTRATE D [Concomitant]
  13. M.V.I. [Concomitant]
  14. M.V.I. [Concomitant]
  15. M.V.I. [Concomitant]
  16. M.V.I. [Concomitant]
  17. M.V.I. [Concomitant]
  18. M.V.I. [Concomitant]
  19. M.V.I. [Concomitant]
  20. M.V.I. [Concomitant]
  21. TRAZODONE HCL [Concomitant]
  22. ZOLOFT [Concomitant]
  23. VITAMIN B6 [Concomitant]

REACTIONS (19)
  - ABSCESS [None]
  - BRAIN DEATH [None]
  - BRAIN HERNIATION [None]
  - CAROTID ARTERY ANEURYSM [None]
  - CEREBRAL INFARCTION [None]
  - CEREBRAL THROMBOSIS [None]
  - CEREBROVASCULAR ACCIDENT [None]
  - CONDITION AGGRAVATED [None]
  - CROHN'S DISEASE [None]
  - DYSPEPSIA [None]
  - GASTROOESOPHAGEAL REFLUX DISEASE [None]
  - INFLAMMATORY BOWEL DISEASE [None]
  - LOSS OF CONSCIOUSNESS [None]
  - PRURITUS ANI [None]
  - RECTAL TENESMUS [None]
  - SHIFT TO THE LEFT [None]
  - SYNCOPE [None]
  - TREATMENT NONCOMPLIANCE [None]
  - WHITE BLOOD CELL COUNT INCREASED [None]
